FAERS Safety Report 10465361 (Version 1)
Quarter: 2014Q3

REPORT INFORMATION
  Report Type: Spontaneous
  Country: FR (occurrence: FR)
  Receive Date: 20140919
  Receipt Date: 20140919
  Transmission Date: 20150326
  Serious: Yes (Other)
  Sender: FDA-Public Use
  Company Number: FR-B.I. PHARMACEUTICALS,INC./RIDGEFIELD-2014-BI-43313FF

PATIENT
  Age: 80 Year
  Sex: Male

DRUGS (2)
  1. JOSIR [Suspect]
     Active Substance: TAMSULOSIN
     Dosage: 0.8 MG
     Route: 065
  2. JOSIR [Suspect]
     Active Substance: TAMSULOSIN
     Indication: MICTURITION DISORDER
     Dosage: 0.4 MG
     Route: 065

REACTIONS (2)
  - Dysuria [Unknown]
  - Drug dependence [Not Recovered/Not Resolved]
